FAERS Safety Report 16899953 (Version 2)
Quarter: 2019Q4

REPORT INFORMATION
  Report Type: Report from Study
  Country: US (occurrence: US)
  Receive Date: 20191009
  Receipt Date: 20191018
  Transmission Date: 20200122
  Serious: Yes (Death, Hospitalization, Other)
  Sender: FDA-Public Use
  Company Number: US-ACTELION-A-NJ2018-183215

PATIENT
  Age: 6 Year
  Sex: Male
  Weight: 15.87 kg

DRUGS (5)
  1. PRILOSEC [Concomitant]
     Active Substance: OMEPRAZOLE MAGNESIUM
     Dosage: 8.4 MG, Q12HRS
  2. REVATIO [Concomitant]
     Active Substance: SILDENAFIL CITRATE
     Dosage: 20 MG, TID
     Dates: start: 20160718
  3. ZYRTEC [Concomitant]
     Active Substance: CETIRIZINE HYDROCHLORIDE
     Dosage: 5 ML, QD
  4. BOSENTAN TABLET 32 MG PED US [Suspect]
     Active Substance: BOSENTAN
     Dosage: 16 MG, QD
     Route: 048
     Dates: start: 20150817
  5. BOSENTAN TABLET 32 MG PED US [Suspect]
     Active Substance: BOSENTAN
     Indication: PULMONARY HYPERTENSION
     Dosage: 32 MG, BID
     Route: 048
     Dates: end: 20191001

REACTIONS (9)
  - Loss of consciousness [Unknown]
  - Pulmonary arterial hypertension [Unknown]
  - Bronchial hyperreactivity [Unknown]
  - Malaise [Unknown]
  - Respiratory arrest [Fatal]
  - Cardiac arrest [Fatal]
  - Pulmonary hypertensive crisis [Unknown]
  - Patient uncooperative [Unknown]
  - Product dose omission [Unknown]

NARRATIVE: CASE EVENT DATE: 20191001
